FAERS Safety Report 21140217 (Version 1)
Quarter: 2022Q3

REPORT INFORMATION
  Report Type: Spontaneous
  Country: US (occurrence: US)
  Receive Date: 20220728
  Receipt Date: 20220728
  Transmission Date: 20221027
  Serious: Yes (Other)
  Sender: FDA-Public Use
  Company Number: US-BEH-2022147813

PATIENT
  Age: 30 Year
  Sex: Female

DRUGS (2)
  1. PRIVIGEN [Suspect]
     Active Substance: HUMAN IMMUNOGLOBULIN G
     Indication: Chronic inflammatory demyelinating polyradiculoneuropathy
     Dosage: 5 GRAM, QOW
     Route: 042
     Dates: start: 20211223
  2. PRIVIGEN [Suspect]
     Active Substance: HUMAN IMMUNOGLOBULIN G
     Dosage: 20 GRAM, QOW
     Route: 042
     Dates: start: 20211223

REACTIONS (2)
  - Vein rupture [Unknown]
  - Fluid retention [Unknown]

NARRATIVE: CASE EVENT DATE: 20220501
